FAERS Safety Report 23043177 (Version 1)
Quarter: 2023Q4

REPORT INFORMATION
  Report Type: Other
  Country: US (occurrence: None)
  Receive Date: 20231009
  Receipt Date: 20231009
  Transmission Date: 20240109
  Serious: Yes (Death)
  Sender: FDA-Public Use
  Company Number: US-ROCHE-3433476

PATIENT
  Age: 74 Year
  Sex: Female

DRUGS (4)
  1. RITUXAN [Suspect]
     Active Substance: RITUXIMAB
     Indication: Nephritic syndrome
     Dosage: FOR 2 DOSES AND REPEAT AS DIRECTED
     Route: 041
  2. RITUXAN [Suspect]
     Active Substance: RITUXIMAB
     Indication: Glomerulonephritis membranous
  3. RITUXAN [Suspect]
     Active Substance: RITUXIMAB
     Indication: Hyperkalaemia
  4. RITUXAN [Suspect]
     Active Substance: RITUXIMAB
     Indication: Hepatitis C

REACTIONS (2)
  - Death [Fatal]
  - Off label use [Unknown]
